FAERS Safety Report 25390651 (Version 1)
Quarter: 2025Q2

REPORT INFORMATION
  Report Type: Spontaneous
  Country: US (occurrence: None)
  Receive Date: 20250603
  Receipt Date: 20250603
  Transmission Date: 20250716
  Serious: Yes (Other)
  Sender: FDA-CTU
  Company Number: None

PATIENT
  Age: 77 Year
  Sex: Female
  Weight: 78.47 kg

DRUGS (1)
  1. SODIUM FLUORIDE [Suspect]
     Active Substance: SODIUM FLUORIDE

REACTIONS (7)
  - Dry mouth [None]
  - Chapped lips [None]
  - Lip swelling [None]
  - Swollen tongue [None]
  - Chapped lips [None]
  - Glossodynia [None]
  - Oral mucosal blistering [None]
